FAERS Safety Report 12522010 (Version 2)
Quarter: 2016Q3

REPORT INFORMATION
  Report Type: Spontaneous
  Country: US (occurrence: US)
  Receive Date: 20160701
  Receipt Date: 20160728
  Transmission Date: 20161109
  Serious: Yes (Hospitalization)
  Sender: FDA-Public Use
  Company Number: US-ASTRAZENECA-2016SE70425

PATIENT
  Age: 61 Year
  Sex: Female
  Weight: 55.3 kg

DRUGS (7)
  1. LISINOPRIL. [Suspect]
     Active Substance: LISINOPRIL
     Indication: BLOOD PRESSURE ABNORMAL
     Dosage: 20.0MG UNKNOWN
     Route: 048
     Dates: start: 2011
  2. LISINOPRIL. [Suspect]
     Active Substance: LISINOPRIL
     Indication: BLOOD PRESSURE ABNORMAL
     Dosage: 10.0MG UNKNOWN
     Route: 048
     Dates: start: 2011
  3. PROAIR HFA [Concomitant]
     Active Substance: ALBUTEROL SULFATE
     Indication: DYSPNOEA
     Dosage: 90 MCG, 2 PUFFS EVERY 4 HOURS AS NEEDED
     Route: 055
  4. HYDROCHLOROTHIAZIDE. [Concomitant]
     Active Substance: HYDROCHLOROTHIAZIDE
     Indication: FLUID RETENTION
     Route: 048
     Dates: start: 2014
  5. SYMBICORT [Suspect]
     Active Substance: BUDESONIDE\FORMOTEROL FUMARATE DIHYDRATE
     Indication: CHRONIC OBSTRUCTIVE PULMONARY DISEASE
     Dosage: 160-4.5MCG., 2 PUFFS, TWICE A DAY
     Route: 055
     Dates: start: 2012
  6. ASPIRIN. [Concomitant]
     Active Substance: ASPIRIN
     Route: 048
     Dates: start: 2011
  7. OXYGEN. [Concomitant]
     Active Substance: OXYGEN
     Indication: DYSPNOEA
     Route: 055
     Dates: start: 2014

REACTIONS (14)
  - Device malfunction [Unknown]
  - Throat irritation [Unknown]
  - Dental caries [Unknown]
  - Product taste abnormal [Unknown]
  - Increased viscosity of bronchial secretion [Unknown]
  - Drug dose omission [Unknown]
  - Device failure [Unknown]
  - H1N1 influenza [Unknown]
  - Rhinorrhoea [Unknown]
  - Body height decreased [Unknown]
  - Blood pressure increased [Unknown]
  - Pneumonia [Unknown]
  - Cataract [Unknown]
  - Fluid retention [Unknown]

NARRATIVE: CASE EVENT DATE: 2011
